FAERS Safety Report 7410753-6 (Version None)
Quarter: 2011Q2

REPORT INFORMATION
  Report Type: 
  Country: None (occurrence: None)
  Receive Date: 20110413
  Receipt Date: 20110404
  Transmission Date: 20111010
  Serious: Yes (Other)
  Sender: FDA-Public Use
  Company Number: GB-AMGEN-GBRSP2011017909

PATIENT
  Age: 70 Year
  Sex: Female

DRUGS (2)
  1. PROLIA [Suspect]
     Indication: OSTEOPOROSIS
     Dosage: 60 MG, UNK
     Route: 058
     Dates: start: 20110224
  2. ADCAL D3 [Concomitant]
     Indication: OSTEOPOROSIS
     Route: 048

REACTIONS (3)
  - SWELLING FACE [None]
  - PRURITUS [None]
  - ERYTHEMA [None]
